FAERS Safety Report 9554538 (Version 2)
Quarter: 2013Q4

REPORT INFORMATION
  Report Type: Spontaneous
  Country: JP (occurrence: JP)
  Receive Date: 20130925
  Receipt Date: 20131016
  Transmission Date: 20140711
  Serious: Yes (Death, Hospitalization)
  Sender: FDA-Public Use
  Company Number: JP-BAXTER-2013BAX036799

PATIENT
  Sex: Male
  Weight: 68 kg

DRUGS (3)
  1. DIANEAL-N PD-4 1.5 PD SOLUTION [Suspect]
     Indication: GLOMERULONEPHRITIS
     Route: 033
     Dates: start: 20110826, end: 20130916
  2. EXTRANEAL [Suspect]
     Indication: GLOMERULONEPHRITIS
     Route: 033
     Dates: start: 20110826, end: 20130916
  3. EXTRANEAL [Suspect]
     Route: 033
     Dates: start: 20110826, end: 20130916

REACTIONS (2)
  - Respiratory arrest [Fatal]
  - Cerebral haemorrhage [Not Recovered/Not Resolved]
